FAERS Safety Report 18563776 (Version 2)
Quarter: 2021Q1

REPORT INFORMATION
  Report Type: Spontaneous
  Country: JP (occurrence: JP)
  Receive Date: 20201201
  Receipt Date: 20210105
  Transmission Date: 20210419
  Serious: Yes (Other)
  Sender: FDA-Public Use
  Company Number: NVSJ2020JP011207

PATIENT
  Age: 74 Year
  Sex: Male

DRUGS (1)
  1. BEOVU [Suspect]
     Active Substance: BROLUCIZUMAB-DBLL
     Indication: AGE-RELATED MACULAR DEGENERATION
     Dosage: 6 MG
     Route: 031
     Dates: start: 20200929, end: 20200929

REACTIONS (5)
  - Intraocular pressure increased [Recovering/Resolving]
  - Ocular hyperaemia [Recovered/Resolved]
  - Visual acuity reduced transiently [Recovered/Resolved]
  - Glaucoma [Recovering/Resolving]
  - Iridocyclitis [Recovered/Resolved]

NARRATIVE: CASE EVENT DATE: 20201012
